FAERS Safety Report 13222014 (Version 2)
Quarter: 2017Q2

REPORT INFORMATION
  Report Type: Report from Study
  Country: CA (occurrence: CA)
  Receive Date: 20170211
  Receipt Date: 20170425
  Transmission Date: 20170830
  Serious: Yes (Death)
  Sender: FDA-Public Use
  Company Number: CA-HLSUS-2017-CA-000136

PATIENT
  Age: 90 Year
  Sex: Female

DRUGS (2)
  1. LEVODOPA [Concomitant]
     Active Substance: LEVODOPA
     Indication: PARKINSON^S DISEASE
     Dosage: 100/25 TID
     Route: 048
     Dates: end: 20170127
  2. CLOZARIL [Suspect]
     Active Substance: CLOZAPINE
     Indication: PSYCHOTIC DISORDER
     Dosage: 75 MG
     Route: 048
     Dates: start: 20161028, end: 20170127

REACTIONS (4)
  - Urosepsis [Fatal]
  - Hypophagia [Unknown]
  - Disturbance in attention [Unknown]
  - Delirium [Unknown]

NARRATIVE: CASE EVENT DATE: 20170121
